FAERS Safety Report 4610762-6 (Version None)
Quarter: 2005Q2

REPORT INFORMATION
  Report Type: 
  Country: None (occurrence: None)
  Receive Date: 20050301
  Receipt Date: 20041214
  Transmission Date: 20051028
  Serious: No
  Sender: FDA-Public Use
  Company Number: WAES 0412USA01809

PATIENT
  Age: 56 Year
  Sex: Male

DRUGS (11)
  1. ZETIA [Suspect]
     Indication: HYPERCHOLESTEROLAEMIA
     Dosage: 10 MG/DAILY/PO
     Route: 048
     Dates: start: 20040914
  2. HYDRODIURIL [Concomitant]
  3. LEVAQUIN [Concomitant]
  4. PRINIVIL [Concomitant]
  5. ASCORBIC ACID [Concomitant]
  6. ASPIRIN [Concomitant]
  7. ATENOLOL [Concomitant]
  8. CHROMIUM PICOLINATE [Concomitant]
  9. GLYBURIDE [Concomitant]
  10. VITAMIN E [Concomitant]
  11. VITAMINS (UNSPECIFIED) [Concomitant]

REACTIONS (1)
  - GLYCOSYLATED HAEMOGLOBIN INCREASED [None]
